FAERS Safety Report 4556350-1 (Version None)
Quarter: 2005Q1

REPORT INFORMATION
  Report Type: 
  Country: None (occurrence: None)
  Receive Date: 20050103
  Receipt Date: 20040819
  Transmission Date: 20050727
  Serious: Yes (Other)
  Sender: FDA-Public Use
  Company Number: 2004UW17626

PATIENT
  Sex: Female

DRUGS (1)
  1. CRESTOR [Suspect]
     Dates: start: 20030801

REACTIONS (2)
  - DIFFICULTY IN WALKING [None]
  - MYALGIA [None]
